FAERS Safety Report 8225544-6 (Version None)
Quarter: 2012Q1

REPORT INFORMATION
  Report Type: 
  Country: None (occurrence: None)
  Receive Date: 20120321
  Receipt Date: 20120312
  Transmission Date: 20120608
  Serious: Yes (Other)
  Sender: FDA-Public Use
  Company Number: PHHY2012SE022828

PATIENT
  Age: 40 Year
  Sex: Female

DRUGS (8)
  1. CLOZAPINE [Suspect]
  2. SIMVASTATIN [Concomitant]
  3. SPIRIVA [Concomitant]
  4. CLOZAPINE [Suspect]
  5. METFORMIN HCL [Concomitant]
  6. CLOZAPINE [Suspect]
     Route: 048
  7. ASPIRIN [Concomitant]
  8. ENALAPRIL [Concomitant]

REACTIONS (5)
  - CARDIAC DISORDER [None]
  - DIABETES MELLITUS [None]
  - FATIGUE [None]
  - BLOOD PRESSURE INCREASED [None]
  - HEART RATE INCREASED [None]
